FAERS Safety Report 11421296 (Version 2)
Quarter: 2016Q2

REPORT INFORMATION
  Report Type: Report from Study
  Country: FR (occurrence: FR)
  Receive Date: 20150826
  Receipt Date: 20160512
  Transmission Date: 20160815
  Serious: Yes (Hospitalization, Other)
  Sender: FDA-Public Use
  Company Number: FR-BAXTER-2015BAX045898

PATIENT
  Age: 44 Year
  Sex: Female
  Weight: 67 kg

DRUGS (15)
  1. ENDOXAN 50 MG, COMPRIM? ENROB? [Suspect]
     Active Substance: CYCLOPHOSPHAMIDE
     Indication: OSTEOSARCOMA METASTATIC
     Dosage: 4 CYCLES
     Route: 048
     Dates: end: 20150721
  2. BIPROFENID [Concomitant]
     Active Substance: KETOPROFEN
     Indication: TUMOUR PAIN
     Route: 048
     Dates: start: 20150427
  3. METHOTREXATE SODIUM. [Suspect]
     Active Substance: METHOTREXATE SODIUM
     Indication: OSTEOSARCOMA METASTATIC
     Dosage: 4 CYCLES
     Route: 048
     Dates: end: 20150721
  4. SIROLIMUS. [Suspect]
     Active Substance: SIROLIMUS
     Indication: NEOPLASM MALIGNANT
     Dosage: 4 CYCLES
     Route: 048
     Dates: start: 20150330
  5. SIROLIMUS. [Suspect]
     Active Substance: SIROLIMUS
     Indication: OSTEOSARCOMA METASTATIC
     Dosage: 4 CYCLES
     Route: 048
     Dates: end: 20150721
  6. ZOLEDRONIC ACID [Suspect]
     Active Substance: ZOLEDRONIC ACID
     Indication: OSTEOSARCOMA METASTATIC
     Dosage: 4 CYCLES
     Route: 042
     Dates: end: 20150721
  7. METHOTREXATE SODIUM. [Suspect]
     Active Substance: METHOTREXATE SODIUM
     Indication: NEOPLASM MALIGNANT
     Dosage: 4 CYCLES
     Route: 048
     Dates: start: 20150330
  8. METHOTREXATE SODIUM. [Suspect]
     Active Substance: METHOTREXATE SODIUM
     Indication: METASTASES TO BONE
     Dosage: 4 CYCLES
     Route: 048
     Dates: start: 20150716
  9. ZOLEDRONIC ACID [Suspect]
     Active Substance: ZOLEDRONIC ACID
     Indication: METASTASES TO BONE
     Dosage: 4 CYCLES
     Route: 042
     Dates: start: 20150625
  10. PANTOPRAZOLE [Concomitant]
     Active Substance: PANTOPRAZOLE SODIUM
     Indication: GASTROOESOPHAGEAL REFLUX DISEASE
     Route: 048
     Dates: start: 20150312
  11. ZOLEDRONIC ACID [Suspect]
     Active Substance: ZOLEDRONIC ACID
     Indication: NEOPLASM MALIGNANT
     Dosage: 4 CYCLES
     Route: 042
     Dates: start: 20150331
  12. PARACETAMOL [Concomitant]
     Active Substance: ACETAMINOPHEN
     Indication: TUMOUR PAIN
     Route: 048
     Dates: start: 20150401
  13. ENDOXAN 50 MG, COMPRIM? ENROB? [Suspect]
     Active Substance: CYCLOPHOSPHAMIDE
     Indication: METASTASES TO BONE
     Dosage: 4 CYCLES
     Route: 048
     Dates: start: 20150712
  14. SIROLIMUS. [Suspect]
     Active Substance: SIROLIMUS
     Indication: METASTASES TO BONE
     Dosage: 4 CYCLES
     Route: 048
     Dates: start: 20150718
  15. ENDOXAN 50 MG, COMPRIM? ENROB? [Suspect]
     Active Substance: CYCLOPHOSPHAMIDE
     Indication: NEOPLASM MALIGNANT
     Dosage: 4 CYCLES
     Route: 048
     Dates: start: 20150330

REACTIONS (2)
  - Disease progression [Unknown]
  - Pneumonitis [Recovered/Resolved]

NARRATIVE: CASE EVENT DATE: 20150718
